FAERS Safety Report 14057745 (Version 1)
Quarter: 2017Q4

REPORT INFORMATION
  Report Type: Spontaneous
  Country: CA (occurrence: CA)
  Receive Date: 20171006
  Receipt Date: 20171006
  Transmission Date: 20180321
  Serious: Yes (Other)
  Sender: FDA-Public Use
  Company Number: CA-PFIZER INC-2017408624

PATIENT
  Sex: Female

DRUGS (2)
  1. EPIPEN [Suspect]
     Active Substance: EPINEPHRINE
     Dosage: 0.3 MG, UNK
  2. EPIPEN [Suspect]
     Active Substance: EPINEPHRINE
     Dosage: 0.3 MG, UNK

REACTIONS (6)
  - Needle issue [Unknown]
  - Product quality issue [Unknown]
  - Feeling jittery [Unknown]
  - Device failure [Unknown]
  - Device use issue [Unknown]
  - Drug dose omission [Unknown]
